FAERS Safety Report 17033846 (Version 1)
Quarter: 2019Q4

REPORT INFORMATION
  Report Type: Spontaneous
  Country: US (occurrence: US)
  Receive Date: 20191114
  Receipt Date: 20191114
  Transmission Date: 20200122
  Serious: No
  Sender: FDA-Public Use
  Company Number: US-RIGEL PHARMACEUTICALS, INC.-2019FOS000387

PATIENT
  Sex: Female

DRUGS (4)
  1. TAVALISSE [Suspect]
     Active Substance: FOSTAMATINIB
     Indication: IMMUNE THROMBOCYTOPENIC PURPURA
  2. LISINOPRIL. [Concomitant]
     Active Substance: LISINOPRIL
     Indication: PRODUCT USED FOR UNKNOWN INDICATION
     Dosage: UNK
  3. TAVALISSE [Suspect]
     Active Substance: FOSTAMATINIB
     Indication: MALIGNANT NEOPLASM OF ORBIT
     Dosage: 150 MG, BID
     Route: 048
     Dates: start: 201808
  4. VITAMIN D3 [Concomitant]
     Active Substance: CHOLECALCIFEROL
     Indication: PRODUCT USED FOR UNKNOWN INDICATION
     Dosage: UNK

REACTIONS (4)
  - Anxiety [Unknown]
  - Muscle spasms [Unknown]
  - Bone pain [Unknown]
  - Poor quality sleep [Unknown]
